FAERS Safety Report 5594034-1 (Version None)
Quarter: 2008Q1

REPORT INFORMATION
  Report Type: 
  Country: None (occurrence: None)
  Receive Date: 20080116
  Receipt Date: 20080111
  Transmission Date: 20080703
  Serious: Yes (Hospitalization)
  Sender: FDA-Public Use
  Company Number: FR-MERCK-0711FRA00043

PATIENT
  Age: 75 Year
  Sex: Female

DRUGS (5)
  1. FOSAMAX [Suspect]
     Indication: OSTEOPOROSIS
     Route: 048
     Dates: end: 20071001
  2. VERAPAMIL [Concomitant]
     Route: 048
  3. TRIMETAZIDINE [Concomitant]
     Route: 048
  4. DIACEREIN [Concomitant]
     Indication: OSTEOARTHRITIS
     Route: 048
  5. TRAMADOL HYDROCHLORIDE [Concomitant]
     Indication: OSTEOARTHRITIS
     Route: 048

REACTIONS (1)
  - VISUAL ACUITY REDUCED [None]
